FAERS Safety Report 7050076-0 (Version None)
Quarter: 2010Q4

REPORT INFORMATION
  Report Type: 
  Country: None (occurrence: None)
  Receive Date: 20101018
  Receipt Date: 20101011
  Transmission Date: 20110411
  Serious: Yes (Hospitalization, Other)
  Sender: FDA-Public Use
  Company Number: BR-SANOFI-AVENTIS-2010SA062457

PATIENT
  Age: 9 Year
  Sex: Female
  Weight: 58 kg

DRUGS (7)
  1. OPTIPEN [Suspect]
  2. LANTUS [Suspect]
     Indication: TYPE 1 DIABETES MELLITUS
     Route: 058
  3. NOVORAPID [Concomitant]
     Indication: TYPE 1 DIABETES MELLITUS
     Route: 058
  4. SIBUTRAMINE HYDROCHLORIDE MONOHYDRATE [Concomitant]
     Indication: APPETITE DISORDER
     Route: 048
  5. FLUOXETINE [Concomitant]
     Indication: ANTIDEPRESSANT THERAPY
     Route: 048
  6. HYDROXYZINE [Concomitant]
     Route: 048
  7. EUTHYROX [Concomitant]
     Indication: HYPOTHYROIDISM
     Route: 048

REACTIONS (4)
  - BRUXISM [None]
  - HYPERGLYCAEMIA [None]
  - MYOCLONUS [None]
  - SYNCOPE [None]
